FAERS Safety Report 7016541-7 (Version None)
Quarter: 2010Q3

REPORT INFORMATION
  Report Type: 
  Country: None (occurrence: None)
  Receive Date: 20100927
  Receipt Date: 20100922
  Transmission Date: 20110219
  Serious: Yes (Other)
  Sender: FDA-Public Use
  Company Number: A0870717D

PATIENT
  Age: 57 Year
  Sex: Female
  Weight: 52 kg

DRUGS (4)
  1. LAPATINIB [Suspect]
     Indication: BREAST CANCER
     Dosage: 750MG PER DAY
     Route: 048
     Dates: start: 20100520
  2. DOCETAXEL [Suspect]
     Dosage: 75MGM2 EVERY 3 WEEKS
     Route: 042
     Dates: start: 20100520
  3. CARBOPLATIN [Suspect]
     Indication: BREAST CANCER
     Route: 042
     Dates: start: 20100520
  4. TRASTUZUMAB [Suspect]
     Indication: BREAST CANCER
     Route: 042
     Dates: start: 20100520

REACTIONS (2)
  - FATIGUE [None]
  - HYPOKALAEMIA [None]
